FAERS Safety Report 15480301 (Version 1)
Quarter: 2018Q4

REPORT INFORMATION
  Report Type: Spontaneous
  Country: MX (occurrence: MX)
  Receive Date: 20181009
  Receipt Date: 20181009
  Transmission Date: 20190205
  Serious: Yes (Death)
  Sender: FDA-Public Use
  Company Number: MX-ALLERGAN-1848370US

PATIENT
  Age: 18 Year
  Sex: Male

DRUGS (1)
  1. CEFTAZIDIME;AVIBACTAM - BP [Suspect]
     Active Substance: AVIBACTAM SODIUM\CEFTAZIDIME
     Indication: ANTIBIOTIC THERAPY
     Dosage: UNK, 3X/DAY (EVERY HOURS)
     Route: 065

REACTIONS (1)
  - Death [Fatal]
